FAERS Safety Report 5765630-3 (Version None)
Quarter: 2008Q2

REPORT INFORMATION
  Report Type: 
  Country: None (occurrence: None)
  Receive Date: 20080611
  Receipt Date: 20080428
  Transmission Date: 20081010
  Serious: No
  Sender: FDA-Public Use
  Company Number: CL-AVENTIS-200815214GDDC

PATIENT
  Age: 17 Year
  Sex: Female

DRUGS (3)
  1. ARAVA [Suspect]
     Dosage: DOSE: UNK
  2. PREDNISONE TAB [Concomitant]
     Route: 048
     Dates: start: 20020101
  3. FOLIC ACID [Concomitant]
     Route: 048
     Dates: start: 20020101

REACTIONS (1)
  - DRUG EXPOSURE DURING PREGNANCY [None]
